FAERS Safety Report 9075358 (Version 1)
Quarter: 2013Q1

REPORT INFORMATION
  Report Type: Report from Study
  Country: US (occurrence: US)
  Receive Date: 20130131
  Receipt Date: 20130131
  Transmission Date: 20140127
  Serious: No
  Sender: FDA-Public Use
  Company Number: US-ABBOTT-12P-163-1004921-00

PATIENT
  Sex: Female
  Weight: 88.08 kg

DRUGS (9)
  1. HUMIRA [Suspect]
     Indication: PSORIASIS
     Dosage: ONE TIME DOSE
     Route: 058
     Dates: start: 201207, end: 201207
  2. HUMIRA [Suspect]
     Route: 058
  3. CYCLOSP [Concomitant]
     Indication: PRODUCT USED FOR UNKNOWN INDICATION
  4. LOTREL [Concomitant]
     Indication: PRODUCT USED FOR UNKNOWN INDICATION
  5. METF [Concomitant]
     Indication: PRODUCT USED FOR UNKNOWN INDICATION
  6. TRIAM CR [Concomitant]
     Indication: PRODUCT USED FOR UNKNOWN INDICATION
  7. ULTRACET [Concomitant]
     Indication: PRODUCT USED FOR UNKNOWN INDICATION
  8. TYLEN PM [Concomitant]
     Indication: PRODUCT USED FOR UNKNOWN INDICATION
  9. SIMVAS [Concomitant]
     Indication: PRODUCT USED FOR UNKNOWN INDICATION

REACTIONS (2)
  - Drug ineffective [Not Recovered/Not Resolved]
  - Injection site pain [Recovered/Resolved]
